FAERS Safety Report 7768623-X (Version None)
Quarter: 2011Q3

REPORT INFORMATION
  Report Type: 
  Country: None (occurrence: None)
  Receive Date: 20110922
  Receipt Date: 20101222
  Transmission Date: 20111222
  Serious: No
  Sender: FDA-Public Use
  Company Number: US-ASTRAZENECA-2010SE60513

PATIENT
  Age: 21610 Day
  Sex: Male
  Weight: 97.1 kg

DRUGS (5)
  1. SEROQUEL [Suspect]
     Indication: BIPOLAR DISORDER
     Route: 048
     Dates: start: 20060101
  2. BENZOPRIL [Concomitant]
  3. SEROQUEL [Suspect]
     Route: 048
     Dates: start: 20100901, end: 20101201
  4. DOXAZOSIN MESYLATE [Concomitant]
  5. BUPRIOPRION HCL [Concomitant]

REACTIONS (4)
  - TACHYPHRENIA [None]
  - INSOMNIA [None]
  - DRUG INEFFECTIVE [None]
  - DRUG DOSE OMISSION [None]
